FAERS Safety Report 11275382 (Version 2)
Quarter: 2015Q3

REPORT INFORMATION
  Report Type: Spontaneous
  Country: US (occurrence: None)
  Receive Date: 20150714
  Receipt Date: 20150724
  Transmission Date: 20151125
  Serious: Yes (Other)
  Sender: FDA-Public Use
  Company Number: 2015SMT00160

PATIENT
  Age: 50 Year
  Sex: Male
  Weight: 143.8 kg

DRUGS (1)
  1. REGRANEX [Suspect]
     Active Substance: BECAPLERMIN
     Indication: WOUND
     Route: 061
     Dates: start: 201505

REACTIONS (3)
  - Skin ulcer [None]
  - Wound complication [None]
  - Toe amputation [None]

NARRATIVE: CASE EVENT DATE: 201505
